FAERS Safety Report 21664635 (Version 1)
Quarter: 2022Q4

REPORT INFORMATION
  Report Type: Spontaneous
  Country: GB (occurrence: GB)
  Receive Date: 20221130
  Receipt Date: 20221130
  Transmission Date: 20230113
  Serious: Yes (Other)
  Sender: FDA-Public Use
  Company Number: GB-JNJFOC-20221058109

PATIENT
  Age: 4 Month

DRUGS (2)
  1. REMICADE [Suspect]
     Active Substance: INFLIXIMAB
     Indication: Colitis
     Route: 063
     Dates: start: 20210921, end: 20211102
  2. MESALAMINE [Concomitant]
     Active Substance: MESALAMINE
     Route: 063

REACTIONS (2)
  - Haematochezia [Recovered/Resolved]
  - Maternal exposure during breast feeding [Unknown]
